FAERS Safety Report 4333615-X (Version None)
Quarter: 2004Q2

REPORT INFORMATION
  Report Type: 
  Country: None (occurrence: None)
  Receive Date: 20040402
  Receipt Date: 20040323
  Transmission Date: 20050107
  Serious: Yes (Death, Hospitalization)
  Sender: FDA-Public Use
  Company Number: 2004004824

PATIENT
  Age: 97 Year
  Sex: Male

DRUGS (3)
  1. ZOLOFT [Suspect]
     Indication: ILL-DEFINED DISORDER
  2. CELECOXIB (CELECOXIB) [Suspect]
     Indication: ILL-DEFINED DISORDER
     Dosage: 200 MG (DAILY)
     Dates: start: 20030701
  3. ROFECOXIB [Suspect]
     Indication: ILL-DEFINED DISORDER
     Dates: start: 20030601

REACTIONS (3)
  - GASTROINTESTINAL HAEMORRHAGE [None]
  - HAEMATEMESIS [None]
  - MALAISE [None]
